FAERS Safety Report 12676946 (Version 1)
Quarter: 2016Q3

REPORT INFORMATION
  Report Type: Spontaneous
  Country: US (occurrence: US)
  Receive Date: 20160823
  Receipt Date: 20160823
  Transmission Date: 20161109
  Serious: Yes (Other)
  Sender: FDA-Public Use
  Company Number: US-TEVA-598359USA

PATIENT
  Age: 83 Year
  Sex: Male

DRUGS (1)
  1. CARBIDOPA AND LEVODOPA [Suspect]
     Active Substance: CARBIDOPA\LEVODOPA
     Indication: PARKINSON^S DISEASE
     Dosage: 8 DOSAGE FORMS DAILY; CARBIDOPA 25 MG/LEVODOPA 100 MG
     Route: 065
     Dates: start: 2014

REACTIONS (5)
  - Product physical issue [Unknown]
  - Incoherent [Unknown]
  - Drug ineffective [Unknown]
  - Abasia [Unknown]
  - Confusional state [Unknown]

NARRATIVE: CASE EVENT DATE: 201509
